FAERS Safety Report 15729964 (Version 1)
Quarter: 2018Q4

REPORT INFORMATION
  Report Type: Spontaneous
  Country: US (occurrence: US)
  Receive Date: 20181216
  Receipt Date: 20181216
  Transmission Date: 20190205
  Serious: Yes (Life-Threatening, Other)
  Sender: FDA-Public Use
  Company Number: None

PATIENT
  Age: 40 Year
  Sex: Female
  Weight: 47.25 kg

DRUGS (1)
  1. CIPROFLOXACIN 500 [Suspect]
     Active Substance: CIPROFLOXACIN
     Indication: URINARY TRACT INFECTION
     Dosage: ?          QUANTITY:5 CAPSULE(S);?
     Route: 048
     Dates: start: 20171123, end: 20171126

REACTIONS (12)
  - Insomnia [None]
  - Depression [None]
  - Upper-airway cough syndrome [None]
  - Muscular weakness [None]
  - Ligament injury [None]
  - Weight decreased [None]
  - Paraesthesia [None]
  - Alopecia [None]
  - Tachycardia [None]
  - Tinnitus [None]
  - Gastrooesophageal reflux disease [None]
  - Crepitations [None]

NARRATIVE: CASE EVENT DATE: 20171127
